FAERS Safety Report 10630086 (Version 1)
Quarter: 2014Q4

REPORT INFORMATION
  Report Type: Spontaneous
  Country: US (occurrence: None)
  Receive Date: 20141203
  Receipt Date: 20141203
  Transmission Date: 20150529
  Serious: No
  Sender: FDA-Public Use
  Company Number: None

PATIENT
  Age: 49 Year
  Sex: Female
  Weight: 127.01 kg

DRUGS (2)
  1. CELLCEPT [Suspect]
     Active Substance: MYCOPHENOLATE MOFETIL\MYCOPHENOLATE MOFETIL HYDROCHLORIDE
     Indication: RHEUMATOID ARTHRITIS
     Dosage: 1 PILL
     Route: 048
     Dates: start: 20140723, end: 20140924
  2. CELLCEPT [Suspect]
     Active Substance: MYCOPHENOLATE MOFETIL\MYCOPHENOLATE MOFETIL HYDROCHLORIDE
     Indication: SYSTEMIC LUPUS ERYTHEMATOSUS
     Dosage: 1 PILL
     Route: 048
     Dates: start: 20140723, end: 20140924

REACTIONS (5)
  - Impaired healing [None]
  - Injection site ulcer [None]
  - Scar [None]
  - Contusion [None]
  - Injection site discharge [None]

NARRATIVE: CASE EVENT DATE: 20141029
